FAERS Safety Report 13649144 (Version 1)
Quarter: 2017Q2

REPORT INFORMATION
  Report Type: Spontaneous
  Country: US (occurrence: US)
  Receive Date: 20170613
  Receipt Date: 20170613
  Transmission Date: 20170830
  Serious: Yes (Death)
  Sender: FDA-Public Use
  Company Number: US-VIFOR (INTERNATIONAL) INC.-VIT-2016-05044

PATIENT
  Age: 75 Year
  Sex: Male

DRUGS (23)
  1. FINASTERIDE. [Concomitant]
     Active Substance: FINASTERIDE
  2. OXYCODONE HYDROCHLORIDE. [Concomitant]
     Active Substance: OXYCODONE HYDROCHLORIDE
  3. ERGOCALCIFEROL. [Concomitant]
     Active Substance: ERGOCALCIFEROL
  4. DIPHENHYDRAMINE HYDROCHLORIDE. [Concomitant]
     Active Substance: DIPHENHYDRAMINE HYDROCHLORIDE
  5. TORISEL [Concomitant]
     Active Substance: TEMSIROLIMUS
  6. PEPCID [Concomitant]
     Active Substance: FAMOTIDINE
  7. COLACE [Concomitant]
     Active Substance: DOCUSATE SODIUM
  8. LOSARTAN POTASSIUM. [Concomitant]
     Active Substance: LOSARTAN POTASSIUM
  9. LABETALOL HYDROCHLORIDE. [Concomitant]
     Active Substance: LABETALOL HYDROCHLORIDE
  10. VELTASSA [Suspect]
     Active Substance: PATIROMER
     Indication: HYPERKALAEMIA
     Route: 048
  11. PROCHLORPERAZINE MALEATE. [Concomitant]
     Active Substance: PROCHLORPERAZINE MALEATE
  12. MIRALAX [Concomitant]
     Active Substance: POLYETHYLENE GLYCOL 3350
  13. ASCORBIC ACID. [Concomitant]
     Active Substance: ASCORBIC ACID
  14. ZINC. [Concomitant]
     Active Substance: ZINC
  15. COENZYME Q10 [Concomitant]
     Active Substance: UBIDECARENONE
  16. AFINITOR [Concomitant]
     Active Substance: EVEROLIMUS
  17. DEXAMETHASONE SODIUM PHOSPHATE. [Concomitant]
     Active Substance: DEXAMETHASONE SODIUM PHOSPHATE
  18. AZITHROMYCIN ANHYDROUS. [Concomitant]
     Active Substance: AZITHROMYCIN ANHYDROUS
  19. MILK OF MAGNESIA [Concomitant]
     Active Substance: MAGNESIUM HYDROXIDE
  20. XARELTO [Concomitant]
     Active Substance: RIVAROXABAN
  21. METHYLPREDNISOLONE. [Concomitant]
     Active Substance: METHYLPREDNISOLONE
  22. MORPHINE SULFATE. [Concomitant]
     Active Substance: MORPHINE SULFATE
  23. PYRIDOXINE HYDROCHLORIDE/CALCIUM PANTOTHENATE/CYANOCOBALAMIN/NICOTINAMIDE/RIBOFLAVIN/THIAMINE HYDROC [Concomitant]

REACTIONS (1)
  - Death [Fatal]

NARRATIVE: CASE EVENT DATE: 20160824
